FAERS Safety Report 7639976-8 (Version None)
Quarter: 2011Q3

REPORT INFORMATION
  Report Type: 
  Country: None (occurrence: None)
  Receive Date: 20110727
  Receipt Date: 20110718
  Transmission Date: 20111222
  Serious: Yes (Other)
  Sender: FDA-Public Use
  Company Number: EE-ROCHE-790362

PATIENT
  Weight: 52 kg

DRUGS (5)
  1. ACTEMRA [Suspect]
     Route: 042
     Dates: start: 20110617
  2. LEUCOVORIN CALCIUM [Concomitant]
     Route: 048
     Dates: start: 20110405
  3. SOLU-MEDROL [Concomitant]
     Route: 048
     Dates: start: 20110405
  4. METHOTREXATE [Suspect]
     Route: 048
     Dates: start: 20110414
  5. PREDNISOLONE [Concomitant]
     Dosage: DOSE IS REPORTED AS 40-}MG
     Route: 048
     Dates: start: 20110405

REACTIONS (2)
  - PYREXIA [None]
  - JOINT SWELLING [None]
